FAERS Safety Report 9052888 (Version 1)
Quarter: 2013Q1

REPORT INFORMATION
  Report Type: Spontaneous
  Country: CA (occurrence: CA)
  Receive Date: 20130207
  Receipt Date: 20130207
  Transmission Date: 20140127
  Serious: Yes (Life-Threatening)
  Sender: FDA-Public Use
  Company Number: CA-B.I. PHARMACEUTICALS,INC./RIDGEFIELD-2013-CN-00176CN

PATIENT
  Age: 73 Year
  Sex: Male
  Weight: 93 kg

DRUGS (10)
  1. PRADAX [Suspect]
     Dosage: 300 MG
     Route: 048
  2. BISOPROLOL [Concomitant]
  3. COVERSYL PLUS [Concomitant]
  4. CRESTOR [Concomitant]
  5. DIAMICRON MR [Concomitant]
  6. DIGOXIN [Concomitant]
  7. EZETROL [Concomitant]
  8. FLOMAX [Concomitant]
  9. METFORMIN [Concomitant]
  10. PROSCAR [Concomitant]

REACTIONS (3)
  - Bladder catheterisation [Recovered/Resolved]
  - Renal failure [Recovered/Resolved]
  - Urinary retention [Recovered/Resolved]
